FAERS Safety Report 7645852-7 (Version None)
Quarter: 2011Q3

REPORT INFORMATION
  Report Type: 
  Country: None (occurrence: None)
  Receive Date: 20110729
  Receipt Date: 20110726
  Transmission Date: 20111222
  Serious: Yes (Other)
  Sender: FDA-Public Use
  Company Number: QA-ABBOTT-11P-132-0835554-00

PATIENT
  Age: 37 Year
  Sex: Female
  Weight: 94 kg

DRUGS (4)
  1. HUMIRA [Suspect]
     Indication: PSORIASIS
     Route: 058
     Dates: start: 20090222, end: 20090707
  2. HUMIRA [Suspect]
     Route: 058
     Dates: end: 20110301
  3. METHOTREXATE [Concomitant]
     Indication: PRODUCT USED FOR UNKNOWN INDICATION
  4. HUMIRA [Suspect]
     Route: 058
     Dates: start: 20110301, end: 20110628

REACTIONS (4)
  - SYSTEMIC LUPUS ERYTHEMATOSUS [None]
  - PSORIASIS [None]
  - HYPERTENSION [None]
  - DRUG INEFFECTIVE [None]
